FAERS Safety Report 24701510 (Version 1)
Quarter: 2024Q4

REPORT INFORMATION
  Report Type: Spontaneous
  Country: DE (occurrence: DE)
  Receive Date: 20241205
  Receipt Date: 20241205
  Transmission Date: 20250115
  Serious: Yes (Other)
  Sender: HELSINN HEALTHCARE
  Company Number: DE-HBP-2024DE031469

PATIENT
  Age: 80 Year
  Sex: Male

DRUGS (2)
  1. MECHLORETHAMINE HYDROCHLORIDE [Suspect]
     Active Substance: MECHLORETHAMINE HYDROCHLORIDE
     Indication: Cutaneous T-cell lymphoma stage I
     Dosage: UNK, QD
     Route: 061
     Dates: start: 202312, end: 202404
  2. MECHLORETHAMINE HYDROCHLORIDE [Suspect]
     Active Substance: MECHLORETHAMINE HYDROCHLORIDE
     Dosage: UNK, QD
     Route: 061
     Dates: start: 202409, end: 202410

REACTIONS (3)
  - Cutaneous T-cell lymphoma [Unknown]
  - Dermatitis [Recovered/Resolved]
  - Skin irritation [Unknown]

NARRATIVE: CASE EVENT DATE: 20240301
